FAERS Safety Report 20501295 (Version 1)
Quarter: 2022Q1

REPORT INFORMATION
  Report Type: Spontaneous
  Country: US (occurrence: None)
  Receive Date: 20220221
  Receipt Date: 20220221
  Transmission Date: 20220424
  Serious: No
  Sender: FDA-Public Use
  Company Number: None

PATIENT
  Age: 78 Year
  Sex: Male

DRUGS (1)
  1. TREPROSTINIL [Suspect]
     Active Substance: TREPROSTINIL
     Indication: Pulmonary arterial hypertension
     Dosage: OTHER FREQUENCY : CONTINUOUS;?OTHER ROUTE : INFUSION;?
     Route: 050
     Dates: start: 20200429

REACTIONS (2)
  - Platelet count decreased [None]
  - Therapy change [None]

NARRATIVE: CASE EVENT DATE: 20220120
